FAERS Safety Report 4388411-4 (Version None)
Quarter: 2004Q3

REPORT INFORMATION
  Report Type: 
  Country: None (occurrence: None)
  Receive Date: 20040701
  Receipt Date: 20020116
  Transmission Date: 20050211
  Serious: Yes (Hospitalization)
  Sender: FDA-Public Use
  Company Number: AU-ROCHE-329385

PATIENT
  Age: 43 Year
  Sex: Male

DRUGS (2)
  1. PEG-INTERFERON ALFA 2A (RO 25-8310) [Suspect]
     Route: 058
     Dates: start: 20021120
  2. RIBAVIRIN [Suspect]
     Route: 048
     Dates: start: 20021120

REACTIONS (2)
  - BURSITIS [None]
  - STAPHYLOCOCCAL INFECTION [None]
